FAERS Safety Report 19853609 (Version 1)
Quarter: 2021Q3

REPORT INFORMATION
  Report Type: Spontaneous
  Country: US (occurrence: US)
  Receive Date: 20210919
  Receipt Date: 20210919
  Transmission Date: 20211014
  Serious: No
  Sender: FDA-Public Use
  Company Number: US-ASTRAZENECA-2021A709103

PATIENT
  Sex: Male

DRUGS (2)
  1. BYDUREON BCISE [Suspect]
     Active Substance: EXENATIDE
     Indication: DIABETES MELLITUS
     Route: 058
     Dates: start: 202108
  2. BYDUREON BCISE [Suspect]
     Active Substance: EXENATIDE
     Indication: EATING DISORDER
     Route: 058
     Dates: start: 202108

REACTIONS (2)
  - Skin discolouration [Unknown]
  - Device issue [Unknown]
